FAERS Safety Report 4288132-2 (Version None)
Quarter: 2004Q1

REPORT INFORMATION
  Report Type: 
  Country: None (occurrence: None)
  Receive Date: 20040209
  Receipt Date: 20030822
  Transmission Date: 20041129
  Serious: No
  Sender: FDA-Public Use
  Company Number: US-GLAXOSMITHKLINE-A0423116A

PATIENT
  Age: 32 Year
  Sex: Female

DRUGS (1)
  1. PAXIL [Suspect]
     Indication: DEPRESSION
     Dosage: 20MG PER DAY
     Route: 048
     Dates: start: 20020701

REACTIONS (5)
  - ABDOMINAL PAIN UPPER [None]
  - ANGER [None]
  - DRUG WITHDRAWAL SYNDROME [None]
  - IMPATIENCE [None]
  - IRRITABILITY [None]
